FAERS Safety Report 8279965 (Version 2)
Quarter: 2013Q2

REPORT INFORMATION
  Report Type: Report from Study
  Country: MX (occurrence: MX)
  Receive Date: 20111208
  Receipt Date: 20130627
  Transmission Date: 20140414
  Serious: Yes (Other)
  Sender: FDA-Public Use
  Company Number: PHHY2011MX105502

PATIENT
  Age: 85 Year
  Sex: Female

DRUGS (12)
  1. RASILEZ [Suspect]
     Indication: HYPERTENSION
     Dosage: 150 MG PER DAY
     Dates: start: 200905
  2. COAPROVEL [Concomitant]
     Indication: BLOOD PRESSURE
     Dosage: 1 DF/ DAY
     Dates: start: 200611
  3. EBIXA [Concomitant]
     Dosage: 10 MG, UNK
     Dates: start: 201011
  4. JANUMET [Concomitant]
     Dosage: 1 DF, UNK
     Dates: start: 200811
  5. THIOCTACID [Concomitant]
     Dosage: 600 MG, UNK
     Dates: start: 200811
  6. SERTRALINE [Concomitant]
     Dosage: 1 /2 TABLET (500 MG) PER DAY, QD
     Dates: start: 200811
  7. LYRICA [Concomitant]
     Dosage: 75 MG, UNK
     Dates: start: 200811
  8. DETRUSITOL [Concomitant]
     Dosage: 4 MG, UNK
     Dates: start: 200811
  9. AKINETON [Concomitant]
     Dosage: 1 /2 TABLET, UNK
     Dates: start: 200811
  10. CALCIUM [Concomitant]
     Dosage: 2 TABLETS (500 MG)
     Dates: start: 200811
  11. MIACALCIN [Concomitant]
     Dosage: 2 APPLICATION DAILY, QD
     Dates: start: 201111
  12. CARBAMAZEPINE [Concomitant]
     Dosage: 200 MG, UNK
     Dates: start: 200811

REACTIONS (5)
  - Spinal fracture [Recovering/Resolving]
  - Back pain [Recovering/Resolving]
  - Pain in extremity [Recovering/Resolving]
  - Musculoskeletal chest pain [Recovering/Resolving]
  - Bone decalcification [Unknown]
